FAERS Safety Report 8560616-8 (Version None)
Quarter: 2012Q3

REPORT INFORMATION
  Report Type: 
  Country: None (occurrence: None)
  Receive Date: 20120723
  Receipt Date: 20120705
  Transmission Date: 20120928
  Serious: Yes (Life-Threatening, Hospitalization)
  Sender: FDA-Public Use
  Company Number: BL-2012-000055

PATIENT
  Age: 27 Year
  Sex: Female

DRUGS (6)
  1. METRONIDAZOLE [Concomitant]
  2. ARIPIPRAZOLE [Concomitant]
  3. ALPRAZOLAM [Concomitant]
  4. CITALOPRAM HYDROBROMIDE [Concomitant]
  5. TOPIRAMATE [Concomitant]
  6. DESMOPRESSIN ACETATE [Suspect]
     Indication: ENURESIS
     Dosage: 200 MICROGRAM ONCE DAILY; ORAL (200 MCG, 1 IN 1 D), ORAL
     Route: 048

REACTIONS (7)
  - HEPATIC NECROSIS [None]
  - HYPONATRAEMIA [None]
  - GASTROOESOPHAGEAL REFLUX DISEASE [None]
  - COAGULOPATHY [None]
  - INTESTINAL ISCHAEMIA [None]
  - SPLENIC NECROSIS [None]
  - ILEUS [None]
